FAERS Safety Report 13945821 (Version 4)
Quarter: 2018Q1

REPORT INFORMATION
  Report Type: Spontaneous
  Country: HK (occurrence: HK)
  Receive Date: 20170907
  Receipt Date: 20180202
  Transmission Date: 20180508
  Serious: Yes (Other)
  Sender: FDA-Public Use
  Company Number: HK-BAYER-2017-160626

PATIENT

DRUGS (1)
  1. STIVARGA [Suspect]
     Active Substance: REGORAFENIB
     Indication: COLORECTAL CANCER METASTATIC
     Dosage: UNK
     Dates: start: 201502, end: 201509

REACTIONS (3)
  - Colorectal cancer stage IV [None]
  - Pulmonary cavitation [None]
  - Metastases to lung [None]

NARRATIVE: CASE EVENT DATE: 201504
